FAERS Safety Report 12940197 (Version 2)
Quarter: 2016Q4

REPORT INFORMATION
  Report Type: Spontaneous
  Country: US (occurrence: US)
  Receive Date: 20161114
  Receipt Date: 20161220
  Transmission Date: 20170207
  Serious: Yes (Other)
  Sender: FDA-Public Use
  Company Number: US-PFIZER INC-2016526282

PATIENT
  Age: 87 Year
  Sex: Female

DRUGS (1)
  1. NEURONTIN [Suspect]
     Active Substance: GABAPENTIN
     Indication: NEUROPATHY PERIPHERAL
     Dosage: UNK

REACTIONS (6)
  - Hypertension [Unknown]
  - Limb discomfort [Unknown]
  - Renal failure [Unknown]
  - Product use issue [Unknown]
  - Blood creatinine increased [Not Recovered/Not Resolved]
  - Dementia [Not Recovered/Not Resolved]

NARRATIVE: CASE EVENT DATE: 2016
